FAERS Safety Report 4420967-5 (Version None)
Quarter: 2004Q3

REPORT INFORMATION
  Report Type: 
  Country: None (occurrence: None)
  Receive Date: 20040809
  Receipt Date: 20040726
  Transmission Date: 20050211
  Serious: Yes (Hospitalization, Disabling)
  Sender: FDA-Public Use
  Company Number: US-MERCK-0407USA02380

PATIENT
  Age: 45 Year
  Sex: Female

DRUGS (3)
  1. ASPIRIN [Concomitant]
     Route: 065
  2. ZETIA [Suspect]
     Indication: BLOOD CHOLESTEROL INCREASED
     Route: 048
     Dates: start: 20040707, end: 20040701
  3. TOPROL-XL [Concomitant]
     Route: 065

REACTIONS (1)
  - RHABDOMYOLYSIS [None]
